FAERS Safety Report 4717694-3 (Version None)
Quarter: 2005Q3

REPORT INFORMATION
  Report Type: 
  Country: None (occurrence: None)
  Receive Date: 20050715
  Receipt Date: 20050705
  Transmission Date: 20060218
  Serious: Yes (Hospitalization, Other)
  Sender: FDA-Public Use
  Company Number: 430056K05USA

PATIENT
  Age: 53 Year
  Sex: Female

DRUGS (1)
  1. NOVANTRONE [Suspect]
     Indication: MULTIPLE SCLEROSIS
     Dates: end: 20040701

REACTIONS (4)
  - ARRHYTHMIA [None]
  - CARDIAC VALVE DISEASE [None]
  - EPIGLOTTITIS [None]
  - OESOPHAGEAL DISORDER [None]
